FAERS Safety Report 5465463-1 (Version None)
Quarter: 2007Q3

REPORT INFORMATION
  Report Type: 
  Country: None (occurrence: None)
  Receive Date: 20070920
  Receipt Date: 20070920
  Transmission Date: 20080115
  Serious: Yes (Life-Threatening, Hospitalization, Other)
  Sender: FDA-Public Use
  Company Number: None

PATIENT
  Age: 65 Year
  Sex: Male

DRUGS (1)
  1. AMIODARONE HCL [Suspect]
     Indication: ATRIAL FIBRILLATION
     Dosage: 200MG, QD, ORAL
     Route: 048

REACTIONS (6)
  - CHOLESTASIS [None]
  - GALLBLADDER ENLARGEMENT [None]
  - JAUNDICE CHOLESTATIC [None]
  - LIVER DISORDER [None]
  - MALIGNANT NEOPLASM OF AMPULLA OF VATER [None]
  - WEIGHT DECREASED [None]
